FAERS Safety Report 5839044-1 (Version None)
Quarter: 2008Q3

REPORT INFORMATION
  Report Type: 
  Country: None (occurrence: None)
  Receive Date: 20080808
  Receipt Date: 20080731
  Transmission Date: 20090109
  Serious: Yes (Other)
  Sender: FDA-Public Use
  Company Number: US-PFIZER INC-2008064715

PATIENT
  Sex: Male
  Weight: 90.9 kg

DRUGS (41)
  1. NEURONTIN [Suspect]
     Indication: DIABETIC NEUROPATHY
     Dates: start: 20070101, end: 20080101
  2. NEURONTIN [Suspect]
     Indication: ARTHRITIS
  3. NEURONTIN [Suspect]
     Indication: NEURALGIA
  4. CELEBREX [Suspect]
     Indication: ARTHRALGIA
  5. PERCOCET [Suspect]
  6. ASPIRIN [Concomitant]
  7. MOTRIN [Concomitant]
  8. MULTI-VITAMINS [Concomitant]
  9. LUTEIN [Concomitant]
  10. VITAMIN B6 [Concomitant]
  11. VITAMIN B-12 [Concomitant]
  12. VITAMIN B-12 [Concomitant]
  13. CHROMIUM PICOLINATE [Concomitant]
  14. CHROMIUM PICOLINATE [Concomitant]
  15. MAGNESIUM SULFATE [Concomitant]
  16. MAGNESIUM SULFATE [Concomitant]
  17. ASCORBIC ACID [Concomitant]
  18. ASCORBIC ACID [Concomitant]
  19. TRAZODONE HCL [Concomitant]
  20. TRAZODONE HCL [Concomitant]
  21. AMBIEN [Concomitant]
  22. AMBIEN [Concomitant]
  23. CYMBALTA [Concomitant]
  24. CYMBALTA [Concomitant]
  25. TEGRETOL [Concomitant]
  26. TEGRETOL [Concomitant]
  27. XANAX [Concomitant]
  28. XANAX [Concomitant]
  29. VALIUM [Concomitant]
  30. VALIUM [Concomitant]
  31. NICOTROL [Concomitant]
  32. NICOTROL [Concomitant]
  33. ADDERALL 10 [Concomitant]
  34. ADDERALL 10 [Concomitant]
  35. CHANTIX [Concomitant]
  36. CHANTIX [Concomitant]
  37. COMMIT [Concomitant]
  38. NITRO-BID [Concomitant]
     Route: 061
  39. DEXTROAMPHETAMINE SULFATE [Concomitant]
  40. LIDOCAINE [Concomitant]
     Route: 061
  41. EPINEPHRINE [Concomitant]

REACTIONS (10)
  - AGITATION [None]
  - ANKLE FRACTURE [None]
  - ANXIETY [None]
  - CARPAL TUNNEL SYNDROME [None]
  - DEPRESSION [None]
  - DRUG INEFFECTIVE [None]
  - FEAR [None]
  - MAJOR DEPRESSION [None]
  - STOMACH DISCOMFORT [None]
  - WEIGHT DECREASED [None]
